FAERS Safety Report 4976762-1 (Version None)
Quarter: 2006Q2

REPORT INFORMATION
  Report Type: 
  Country: None (occurrence: None)
  Receive Date: 20060419
  Receipt Date: 20060417
  Transmission Date: 20061013
  Serious: Yes (Disabling)
  Sender: FDA-Public Use
  Company Number: US-GLAXOSMITHKLINE-A0601984A

PATIENT
  Age: 23 Year
  Sex: Male

DRUGS (6)
  1. PAXIL CR [Suspect]
     Indication: DEPRESSION
     Route: 048
  2. PAXIL [Suspect]
     Indication: DEPRESSION
     Dosage: 40MG PER DAY
     Route: 048
  3. WELLBUTRIN SR [Suspect]
     Indication: DEPRESSION
     Dosage: 150MG TWICE PER DAY
     Route: 048
  4. LAMICTAL [Concomitant]
  5. WELLBUTRIN SR [Concomitant]
  6. KLONOPIN [Concomitant]

REACTIONS (2)
  - DEPRESSIVE SYMPTOM [None]
  - DRUG INEFFECTIVE [None]
